FAERS Safety Report 17485279 (Version 1)
Quarter: 2020Q1

REPORT INFORMATION
  Report Type: Report from Study
  Country: US (occurrence: US)
  Receive Date: 20200302
  Receipt Date: 20200302
  Transmission Date: 20200409
  Serious: Yes (Hospitalization)
  Sender: FDA-Public Use
  Company Number: US-ACTELION-A-NJ2020-200771

PATIENT
  Age: 66 Year
  Sex: Female

DRUGS (2)
  1. ADCIRCA [Concomitant]
     Active Substance: TADALAFIL
     Route: 048
  2. OPSUMIT [Suspect]
     Active Substance: MACITENTAN
     Indication: PULMONARY ARTERIAL HYPERTENSION
     Dosage: 10 MG, QD
     Route: 048
     Dates: start: 20170519

REACTIONS (4)
  - Dyspnoea exertional [Not Recovered/Not Resolved]
  - Nasal congestion [Unknown]
  - Nasopharyngitis [Unknown]
  - Liver transplant [Recovered/Resolved]

NARRATIVE: CASE EVENT DATE: 201912
